FAERS Safety Report 5361065-6 (Version None)
Quarter: 2007Q2

REPORT INFORMATION
  Report Type: 
  Country: None (occurrence: None)
  Receive Date: 20070618
  Receipt Date: 20070606
  Transmission Date: 20071010
  Serious: Yes (Hospitalization)
  Sender: FDA-Public Use
  Company Number: BR-PFIZER INC-2007048179

PATIENT
  Sex: Male
  Weight: 77 kg

DRUGS (4)
  1. SU-011,248 [Suspect]
     Indication: METASTATIC RENAL CELL CARCINOMA
     Route: 048
  2. CANDESARTAN [Concomitant]
     Route: 048
  3. METOPROLOL SUCCINATE [Concomitant]
     Route: 048
  4. OLMETEC [Concomitant]
     Route: 048

REACTIONS (1)
  - THROMBOSIS [None]
